FAERS Safety Report 25751672 (Version 2)
Quarter: 2025Q3

REPORT INFORMATION
  Report Type: Report from Study
  Country: US (occurrence: US)
  Receive Date: 20250902
  Receipt Date: 20250916
  Transmission Date: 20251021
  Serious: Yes (Hospitalization)
  Sender: ABBVIE
  Company Number: US-ABBVIE-6439216

PATIENT
  Sex: Female

DRUGS (1)
  1. SKYRIZI [Suspect]
     Active Substance: RISANKIZUMAB-RZAA
     Indication: Psoriasis
     Route: 058
     Dates: start: 20240515, end: 20250903

REACTIONS (4)
  - Appendicitis perforated [Recovering/Resolving]
  - Appendiceal abscess [Recovering/Resolving]
  - Ovarian cyst [Not Recovered/Not Resolved]
  - Diarrhoea [Not Recovered/Not Resolved]
